FAERS Safety Report 9288977 (Version 1)
Quarter: 2013Q2

REPORT INFORMATION
  Report Type: Spontaneous
  Country: SE (occurrence: SE)
  Receive Date: 20130514
  Receipt Date: 20130514
  Transmission Date: 20140414
  Serious: Yes (Disabling)
  Sender: FDA-Public Use
  Company Number: SE-GLAXOSMITHKLINE-B0891415A

PATIENT
  Sex: Male

DRUGS (1)
  1. BETNOVATE CREAM [Suspect]
     Indication: INFLAMMATION
     Route: 061

REACTIONS (2)
  - Ejaculation failure [Unknown]
  - Drug ineffective [None]
